FAERS Safety Report 8488245-5 (Version None)
Quarter: 2012Q3

REPORT INFORMATION
  Report Type: 
  Country: None (occurrence: None)
  Receive Date: 20120705
  Receipt Date: 20120629
  Transmission Date: 20120928
  Serious: No
  Sender: FDA-Public Use
  Company Number: US-BAYER-2012-065616

PATIENT
  Sex: Female

DRUGS (4)
  1. THYROID MEDICINE [Concomitant]
  2. BLOOD PRESSURE MEDICATION (NOS) [Concomitant]
  3. ALEVE (CAPLET) [Suspect]
     Indication: ARTHRITIS
     Dosage: 2 DF, ONCE
     Route: 048
     Dates: start: 20120628, end: 20120628
  4. CHOLESTEROL- AND TRIGLYCERIDE REDUCERS [Concomitant]

REACTIONS (3)
  - ERYTHEMA [None]
  - DISCOMFORT [None]
  - PARAESTHESIA [None]
